FAERS Safety Report 4977503-4 (Version None)
Quarter: 2006Q2

REPORT INFORMATION
  Report Type: 
  Country: None (occurrence: None)
  Receive Date: 20060420
  Receipt Date: 20060410
  Transmission Date: 20061013
  Serious: Yes (Death, Hospitalization)
  Sender: FDA-Public Use
  Company Number: GB-JNJFOC-20060403046

PATIENT
  Age: 75 Year
  Sex: Female

DRUGS (3)
  1. REMICADE [Suspect]
     Indication: PYODERMA GANGRENOSUM
     Route: 042
  2. PREDNISOLONE [Concomitant]
     Indication: PYODERMA GANGRENOSUM
  3. METHOTREXATE [Concomitant]
     Indication: PYODERMA GANGRENOSUM

REACTIONS (5)
  - METHICILLIN-RESISTANT STAPHYLOCOCCAL AUREUS TEST [None]
  - MULTI-ORGAN FAILURE [None]
  - PNEUMONIA [None]
  - SEPSIS [None]
  - ULCER [None]
